FAERS Safety Report 7046837-4 (Version None)
Quarter: 2010Q4

REPORT INFORMATION
  Report Type: 
  Country: None (occurrence: None)
  Receive Date: 20101015
  Receipt Date: 20101001
  Transmission Date: 20110411
  Serious: Yes (Other)
  Sender: FDA-Public Use
  Company Number: FR-JNJFOC-20101003271

PATIENT
  Sex: Female

DRUGS (19)
  1. TRAMADOL HCL [Suspect]
     Indication: PAIN IN EXTREMITY
     Route: 048
  2. IXPRIM [Suspect]
     Indication: PAIN IN EXTREMITY
     Route: 048
  3. ATORVASTATIN [Concomitant]
     Route: 065
  4. TAREG [Concomitant]
     Route: 065
  5. KAYEXALATE [Concomitant]
     Route: 065
  6. PARACETAMOL [Concomitant]
     Route: 065
  7. LEVOTHYROXINE SODIUM [Concomitant]
     Route: 065
  8. LASIX [Concomitant]
     Route: 065
  9. AMLODIPINE [Concomitant]
     Route: 065
  10. EQUANIL [Concomitant]
     Route: 065
  11. CALCIDIA [Concomitant]
     Route: 065
  12. RENAGEL [Concomitant]
     Route: 065
  13. UVEDOSE [Concomitant]
     Route: 065
  14. TEMERIT [Concomitant]
     Route: 065
  15. PLAVIX [Concomitant]
     Route: 065
  16. IMOVANE [Concomitant]
     Route: 065
  17. TRANSIPEG [Concomitant]
     Route: 065
  18. MIXTARD HUMAN 70/30 [Concomitant]
     Route: 065
  19. NEURONTIN [Concomitant]

REACTIONS (2)
  - ACTIVITIES OF DAILY LIVING IMPAIRED [None]
  - SOMNOLENCE [None]
